FAERS Safety Report 4316393-X (Version None)
Quarter: 2004Q1

REPORT INFORMATION
  Report Type: 
  Country: None (occurrence: None)
  Receive Date: 20040311
  Receipt Date: 20040226
  Transmission Date: 20041129
  Serious: Yes (Other)
  Sender: FDA-Public Use
  Company Number: 2004015663

PATIENT
  Sex: Male

DRUGS (3)
  1. ZELDOX [Suspect]
     Indication: AFFECTIVE DISORDER
     Dosage: 40 MG (BID),ORAL
     Route: 048
     Dates: start: 20040211
  2. LAMOTRIGINE [Concomitant]
  3. CLONAZEPAM [Concomitant]

REACTIONS (4)
  - ALCOHOL WITHDRAWAL SYNDROME [None]
  - FALL [None]
  - GRAND MAL CONVULSION [None]
  - HAND FRACTURE [None]
